FAERS Safety Report 19068245 (Version 1)
Quarter: 2021Q1

REPORT INFORMATION
  Report Type: Spontaneous
  Country: US (occurrence: US)
  Receive Date: 20210326
  Receipt Date: 20210326
  Transmission Date: 20210420
  Serious: Yes (Other)
  Sender: FDA-Public Use
  Company Number: None

PATIENT
  Age: 57 Year
  Sex: Female
  Weight: 220 kg

DRUGS (1)
  1. METHOCARBAMOL (METHOCARBAMOL 500MG TAB) [Suspect]
     Active Substance: METHOCARBAMOL
     Indication: PAIN
     Route: 048
     Dates: start: 20201201, end: 20201201

REACTIONS (2)
  - Throat tightness [None]
  - Pharyngeal swelling [None]

NARRATIVE: CASE EVENT DATE: 20201201
